FAERS Safety Report 4545828-2 (Version None)
Quarter: 2005Q1

REPORT INFORMATION
  Report Type: 
  Country: None (occurrence: None)
  Receive Date: 20050105
  Receipt Date: 20050105
  Transmission Date: 20050727
  Serious: Yes (Other)
  Sender: FDA-Public Use
  Company Number: None

PATIENT
  Sex: Male

DRUGS (1)
  1. MIRTAZAPINE 45 MG PILL FORM [Suspect]
     Indication: MAJOR DEPRESSION
     Dosage: 1 PO QHS
     Route: 048
     Dates: start: 20040506, end: 20040825

REACTIONS (3)
  - MAJOR DEPRESSION [None]
  - MENTAL IMPAIRMENT [None]
  - PHARMACEUTICAL PRODUCT COMPLAINT [None]
